FAERS Safety Report 4603175-4 (Version None)
Quarter: 2005Q1

REPORT INFORMATION
  Report Type: 
  Country: None (occurrence: None)
  Receive Date: 20050307
  Receipt Date: 20050221
  Transmission Date: 20050727
  Serious: Yes (Hospitalization)
  Sender: FDA-Public Use
  Company Number: 2005AP01251

PATIENT
  Age: 77 Year
  Sex: Male

DRUGS (2)
  1. CASODEX [Suspect]
     Indication: PROSTATE CANCER
     Dosage: 80 MG DAILY PO
     Route: 048
     Dates: start: 20050113, end: 20050207
  2. ZOLADEX [Suspect]
     Indication: PROSTATE CANCER
     Dosage: 3.6 MG Q4WK SQ
     Dates: start: 20050113

REACTIONS (9)
  - ABDOMINAL PAIN [None]
  - FEELING ABNORMAL [None]
  - GASTRIC ULCER PERFORATION [None]
  - NAUSEA [None]
  - ORAL INTAKE REDUCED [None]
  - PERITONITIS [None]
  - STRESS [None]
  - URINE OUTPUT DECREASED [None]
  - VOMITING [None]
